FAERS Safety Report 10550686 (Version 2)
Quarter: 2015Q4

REPORT INFORMATION
  Report Type: Spontaneous
  Country: AR (occurrence: AR)
  Receive Date: 20141029
  Receipt Date: 20151130
  Transmission Date: 20160304
  Serious: Yes (Hospitalization)
  Sender: FDA-Public Use
  Company Number: AR-AMGEN-ARGSP2014083474

PATIENT
  Age: 28 Year
  Sex: Female

DRUGS (1)
  1. ENBREL [Suspect]
     Active Substance: ETANERCEPT
     Indication: RHEUMATOID ARTHRITIS
     Dosage: 50 MG, WEEKLY
     Route: 065
     Dates: start: 20090803

REACTIONS (2)
  - Pyrexia [Recovered/Resolved]
  - Tooth infection [Recovered/Resolved]

NARRATIVE: CASE EVENT DATE: 20141010
